FAERS Safety Report 7733768-7 (Version None)
Quarter: 2011Q3

REPORT INFORMATION
  Report Type: 
  Country: None (occurrence: None)
  Receive Date: 20110907
  Receipt Date: 20110829
  Transmission Date: 20111222
  Serious: Yes (Hospitalization, Other)
  Sender: FDA-Public Use
  Company Number: PHBS2007JP13324

PATIENT
  Age: 23 Year
  Sex: Male
  Weight: 64 kg

DRUGS (55)
  1. CERTICAN [Suspect]
     Dosage: 2.5 MG/DAY
     Route: 048
     Dates: start: 20070529, end: 20070604
  2. CERTICAN [Suspect]
     Dosage: 1.25 MG, UNK
     Dates: start: 20100319
  3. CERTICAN [Suspect]
     Dosage: 1.75 MG, QD
     Dates: start: 20100723
  4. CERTICAN [Suspect]
     Dosage: 2 MG, QD
     Dates: start: 20110310
  5. PROGRAF [Suspect]
     Dosage: 3.0 MG, UNK
     Dates: start: 20071019, end: 20080417
  6. DOGMATYL [Concomitant]
  7. CERTICAN [Suspect]
     Dosage: 2 MG/DAY
     Route: 048
     Dates: start: 20070523, end: 20070528
  8. PROGRAF [Suspect]
     Dosage: 5.5 MG DAILY
     Dates: start: 20070530, end: 20070604
  9. TRANILAST [Concomitant]
  10. CELLCEPT [Concomitant]
     Indication: HEART TRANSPLANT
     Dosage: 1750MG
     Route: 048
     Dates: start: 20060404, end: 20070513
  11. CERTICAN [Suspect]
     Dosage: 2 MG/D
     Route: 048
     Dates: start: 20070629, end: 20071017
  12. CERTICAN [Suspect]
     Dosage: 1.5 MG, UNK
     Dates: start: 20071019, end: 20080821
  13. CERTICAN [Suspect]
     Dosage: 1.5 MG, QD
     Dates: start: 20101029
  14. CERTICAN [Suspect]
     Dosage: 1.75 MG, QD
     Dates: start: 20110107
  15. BUFFERIN [Concomitant]
  16. CERTICAN [Suspect]
     Dosage: 2.25 MG, QD
     Dates: start: 20110325
  17. CERTICAN [Suspect]
     Dosage: 2 MG, QD
     Dates: start: 20110331
  18. NORVASC [Concomitant]
  19. JUVELA [Concomitant]
  20. POLARAMINE [Concomitant]
  21. ZADITEN [Concomitant]
  22. BISOPROLOL FUMARATE [Concomitant]
     Indication: HYPERTENSION
     Dosage: 5 MG
     Route: 048
     Dates: start: 20070514
  23. PRAVASTATIN SODIUM [Concomitant]
     Indication: HYPERLIPIDAEMIA
     Dosage: 20 MG
     Route: 048
     Dates: start: 20070514
  24. CERTICAN [Suspect]
     Indication: HEART TRANSPLANT
     Dosage: 1.5 MG/DAY
     Route: 048
     Dates: start: 20070514, end: 20070516
  25. CERTICAN [Suspect]
     Dosage: 2 MG/DAY
     Route: 048
     Dates: start: 20070605, end: 20070611
  26. CERTICAN [Suspect]
     Dosage: 1.75 MG, UNK
     Dates: start: 20080822, end: 20081002
  27. CERTICAN [Suspect]
     Dosage: 1.5 MG, QD
     Dates: start: 20110423
  28. CERTICAN [Suspect]
     Dosage: 2 MG, QD
     Dates: start: 20110426
  29. PROGRAF [Suspect]
     Dosage: 3.7 MG, UNK
     Dates: start: 20071005, end: 20071017
  30. PROGRAF [Suspect]
     Dosage: 3.0 MG, UNK
     Dates: start: 20080424, end: 20080515
  31. PROGRAF [Suspect]
     Dosage: 3.2 MG, UNK
     Dates: start: 20080516, end: 20080701
  32. CERTICAN [Suspect]
     Dosage: 1.75 MG/DAY
     Route: 048
     Dates: start: 20070517, end: 20070522
  33. CERTICAN [Suspect]
     Dosage: 1.75 MG, UNK
     Dates: start: 20091127, end: 20100113
  34. PROGRAF [Suspect]
     Dosage: 4.0 MG DAILY
     Dates: start: 20070605, end: 20070621
  35. PROGRAF [Suspect]
     Dosage: 3.4 MG, UNK
     Dates: start: 20080702, end: 20080703
  36. ENALAPRIL MALEATE [Concomitant]
     Indication: HYPERTENSION
     Dosage: 10 MG
     Route: 048
     Dates: start: 20070514
  37. CERTICAN [Suspect]
     Dosage: 1.5 MG, UNK
     Dates: start: 20100114, end: 20100318
  38. CERTICAN [Suspect]
     Dosage: 1.5 MG, QD
     Dates: start: 20100709
  39. CERTICAN [Suspect]
     Dosage: 1.75 MG, QD
     Dates: start: 20110407
  40. PROGRAF [Suspect]
     Indication: HEART TRANSPLANT
     Dosage: 5.7 MG, DAILY
     Dates: start: 20070308, end: 20070529
  41. PROGRAF [Suspect]
     Dosage: 3.5 MG DAILY
     Dates: start: 20070622, end: 20071004
  42. PROGRAF [Suspect]
     Dosage: 3.0 MG, UNK
     Dates: start: 20080704
  43. OMEPRAZOLE [Concomitant]
  44. ENALAPRIL MALEATE [Concomitant]
  45. SULFAMETHOXAZOLE [Concomitant]
  46. ALENDRONATE SODIUM [Concomitant]
  47. CERTICAN [Suspect]
     Dosage: 1.5 MG/DAY
     Route: 048
     Dates: start: 20070612, end: 20070628
  48. CERTICAN [Suspect]
     Dosage: 1.75 MG, UNK
     Dates: start: 20071018, end: 20071018
  49. CERTICAN [Suspect]
     Dosage: 1.5 MG, UNK
     Dates: start: 20081003, end: 20091126
  50. PROGRAF [Suspect]
     Dosage: 3.2 MG, UNK
     Dates: start: 20071018, end: 20071018
  51. PROGRAF [Suspect]
     Dosage: 3.2 MG, UNK
     Dates: start: 20080418, end: 20080423
  52. SLOW-K [Concomitant]
  53. PRAVASTATIN [Concomitant]
  54. MYCOPHENOLATE MOFETIL [Concomitant]
  55. ANTIDIARRHOEAL MICROORGANISMS [Concomitant]

REACTIONS (16)
  - STOMATITIS [None]
  - SWELLING [None]
  - PYREXIA [None]
  - COUGH [None]
  - GASTROENTERITIS NOROVIRUS [None]
  - IMMUNOSUPPRESSANT DRUG LEVEL INCREASED [None]
  - PAIN [None]
  - EATING DISORDER [None]
  - APHTHOUS STOMATITIS [None]
  - VIRAL INFECTION [None]
  - UPPER RESPIRATORY TRACT INFLAMMATION [None]
  - HEAD INJURY [None]
  - CONCOMITANT DISEASE AGGRAVATED [None]
  - PHARYNGITIS [None]
  - DIARRHOEA INFECTIOUS [None]
  - TOOTH INFECTION [None]
